FAERS Safety Report 16344089 (Version 1)
Quarter: 2019Q2

REPORT INFORMATION
  Report Type: Spontaneous
  Country: US (occurrence: US)
  Receive Date: 20190522
  Receipt Date: 20190522
  Transmission Date: 20190711
  Serious: Yes (Hospitalization, Other)
  Sender: FDA-Public Use
  Company Number: US-PFM-2019-05771

PATIENT
  Age: 8 Month
  Sex: Female
  Weight: 11.79 kg

DRUGS (1)
  1. HEMANGEOL [Suspect]
     Active Substance: PROPRANOLOL HYDROCHLORIDE
     Indication: INFANTILE HAEMANGIOMA
     Dosage: 2 ML, UNK
     Route: 065

REACTIONS (2)
  - Cyanosis [Unknown]
  - Apnoea [Unknown]

NARRATIVE: CASE EVENT DATE: 20190502
